FAERS Safety Report 10314173 (Version 1)
Quarter: 2014Q3

REPORT INFORMATION
  Report Type: Spontaneous
  Country: CN (occurrence: CN)
  Receive Date: 20140718
  Receipt Date: 20140718
  Transmission Date: 20150326
  Serious: Yes (Hospitalization, Other)
  Sender: FDA-Public Use
  Company Number: CN-BRISTOL-MYERS SQUIBB COMPANY-21196118

PATIENT
  Age: 78 Year
  Sex: Female

DRUGS (2)
  1. FRUCTOSE [Suspect]
     Active Substance: FRUCTOSE
     Route: 042
     Dates: start: 20140207, end: 20140217
  2. METFORMIN HCL [Suspect]
     Active Substance: METFORMIN HYDROCHLORIDE
     Dates: start: 20140207, end: 20140218

REACTIONS (4)
  - Hyperlactacidaemia [Recovering/Resolving]
  - Delirium [Unknown]
  - Hyperuricaemia [Recovering/Resolving]
  - Renal injury [Recovering/Resolving]

NARRATIVE: CASE EVENT DATE: 20140214
